FAERS Safety Report 8877559 (Version 1)
Quarter: 2012Q4

REPORT INFORMATION
  Report Type: Spontaneous
  Country: US (occurrence: None)
  Receive Date: 20121101
  Receipt Date: 20121101
  Transmission Date: 20130627
  Serious: Yes (Life-Threatening, Hospitalization, Disabling, Other)
  Sender: FDA-Public Use
  Company Number: None

PATIENT
  Age: 54 Year
  Sex: Female
  Weight: 70.31 kg

DRUGS (2)
  1. STEROID INJECTION NOS [Suspect]
     Indication: MULTIPLE INJURIES
     Dosage: 2x pill a year 5 a years the
  2. STEROID INJECTION NOS [Suspect]
     Indication: SPINAL OPERATION
     Dosage: 2x pill a year 5 a years the

REACTIONS (1)
  - Drug ineffective [None]
